FAERS Safety Report 13170709 (Version 1)
Quarter: 2017Q1

REPORT INFORMATION
  Report Type: Spontaneous
  Country: US (occurrence: US)
  Receive Date: 20170201
  Receipt Date: 20170201
  Transmission Date: 20170428
  Serious: Yes (Other)
  Sender: FDA-Public Use
  Company Number: US-JNJCP-30000368830

PATIENT
  Sex: Male
  Weight: 102 kg

DRUGS (1)
  1. NEUTROGENA BEACH DEFENSE WATER PLUS SUN PROTECTION SUNSCREEN BROAD SPECTRUM SPF70 [Suspect]
     Active Substance: AVOBENZONE\HOMOSALATE\OCTISALATE\OCTOCRYLENE\OXYBENZONE
     Indication: PROPHYLAXIS
     Dosage: TWO QUARTER SIZE  AMOUNT AS NEEDED
     Route: 061

REACTIONS (3)
  - Product expiration date issue [Unknown]
  - Skin cancer [Not Recovered/Not Resolved]
  - Product lot number issue [Unknown]
